FAERS Safety Report 5007326-1 (Version None)
Quarter: 2006Q2

REPORT INFORMATION
  Report Type: 
  Country: None (occurrence: None)
  Receive Date: 20060518
  Receipt Date: 20060518
  Transmission Date: 20061013
  Serious: No
  Sender: FDA-Public Use
  Company Number: None

PATIENT
  Sex: Male
  Weight: 113.8529 kg

DRUGS (2)
  1. CYPHER SIROLIMUS-ELUTING    WYETH [Suspect]
     Indication: CORONARY ARTERY DISEASE
     Dosage: OTHER
     Dates: start: 20060101
  2. PLAVIX [Suspect]
     Indication: CORONARY ARTERY DISEASE
     Dosage: 75MG DAILY PO
     Route: 048
     Dates: start: 20060101

REACTIONS (6)
  - DRUG INEFFECTIVE [None]
  - PRURITUS GENERALISED [None]
  - SCRATCH [None]
  - SKIN BURNING SENSATION [None]
  - TINEA INFECTION [None]
  - URTICARIA [None]
